FAERS Safety Report 7283149-8 (Version None)
Quarter: 2011Q1

REPORT INFORMATION
  Report Type: 
  Country: None (occurrence: None)
  Receive Date: 20110209
  Receipt Date: 20110131
  Transmission Date: 20110831
  Serious: Yes (Other)
  Sender: FDA-Public Use
  Company Number: FR-SANOFI-AVENTIS-2011SA002791

PATIENT
  Age: 62 Year
  Sex: Male
  Weight: 95 kg

DRUGS (4)
  1. MULTAQ [Suspect]
     Route: 048
     Dates: start: 20101102, end: 20110111
  2. PREVISCAN [Concomitant]
     Indication: ATRIAL FIBRILLATION
     Route: 048
  3. TAHOR [Concomitant]
     Route: 048
  4. AMIODARONE [Concomitant]
     Route: 048
     Dates: end: 20110108

REACTIONS (4)
  - ATRIAL FIBRILLATION [None]
  - DRUG INEFFECTIVE [None]
  - DYSPNOEA [None]
  - CARDIAC FAILURE [None]
